FAERS Safety Report 13776591 (Version 1)
Quarter: 2017Q3

REPORT INFORMATION
  Report Type: Spontaneous
  Country: FR (occurrence: FR)
  Receive Date: 20170721
  Receipt Date: 20170721
  Transmission Date: 20171127
  Serious: Yes (Hospitalization)
  Sender: FDA-Public Use
  Company Number: FR-PFIZER INC-2017306558

PATIENT
  Age: 22 Year
  Sex: Male

DRUGS (10)
  1. PYOSTACINE [Suspect]
     Active Substance: PRISTINAMYCIN
     Dosage: 1 G, 3X/DAY
     Route: 048
     Dates: start: 20170427, end: 20170502
  2. PYOSTACINE [Suspect]
     Active Substance: PRISTINAMYCIN
     Dosage: 1 G, 3X/DAY
     Route: 048
     Dates: start: 20170508
  3. IMIPENEM [Suspect]
     Active Substance: IMIPENEM
     Dosage: UNK
     Route: 042
     Dates: start: 20170502, end: 20170512
  4. IFOSFAMIDE. [Suspect]
     Active Substance: IFOSFAMIDE
     Indication: HODGKIN^S DISEASE
     Dosage: UNK
     Route: 042
     Dates: start: 20170401, end: 20170424
  5. ZYVOXID [Suspect]
     Active Substance: LINEZOLID
     Dosage: UNK
     Route: 048
     Dates: start: 20170420, end: 20170427
  6. TRIFLUCAN [Suspect]
     Active Substance: FLUCONAZOLE
     Indication: FUNGAL INFECTION
     Dosage: UNK
     Route: 048
     Dates: start: 20170504
  7. AMIKACIN [Suspect]
     Active Substance: AMIKACIN
     Dosage: UNK
     Route: 042
     Dates: start: 20170502, end: 20170512
  8. ETOPOSIDE. [Suspect]
     Active Substance: ETOPOSIDE
     Indication: HODGKIN^S DISEASE
     Dosage: UNK
     Route: 042
     Dates: start: 20170401, end: 20170424
  9. ZYVOXID [Suspect]
     Active Substance: LINEZOLID
     Dosage: 600 MG, 2X/DAY
     Route: 048
     Dates: start: 20170502, end: 20170508
  10. CARBOPLATIN. [Suspect]
     Active Substance: CARBOPLATIN
     Indication: HODGKIN^S DISEASE
     Dosage: UNK
     Route: 042
     Dates: start: 20170401, end: 20170424

REACTIONS (2)
  - Optic nerve injury [Not Recovered/Not Resolved]
  - Visual field defect [Not Recovered/Not Resolved]

NARRATIVE: CASE EVENT DATE: 20170512
